FAERS Safety Report 5299102-X (Version None)
Quarter: 2007Q2

REPORT INFORMATION
  Report Type: 
  Country: None (occurrence: None)
  Receive Date: 20070417
  Receipt Date: 20070410
  Transmission Date: 20071010
  Serious: Yes (Hospitalization)
  Sender: FDA-Public Use
  Company Number: JP-JPN-A200701296

PATIENT
  Age: 7 Year
  Sex: Male

DRUGS (1)
  1. RELENZA [Suspect]
     Indication: INFLUENZA
     Dosage: 5MG SINGLE DOSE
     Route: 055
     Dates: start: 20070302, end: 20070302

REACTIONS (2)
  - ABNORMAL BEHAVIOUR [None]
  - SPEECH DISORDER [None]
